FAERS Safety Report 15547726 (Version 2)
Quarter: 2018Q4

REPORT INFORMATION
  Report Type: Spontaneous
  Country: JP (occurrence: JP)
  Receive Date: 20181024
  Receipt Date: 20181126
  Transmission Date: 20190205
  Serious: Yes (Hospitalization, Other)
  Sender: FDA-Public Use
  Company Number: JP-GILEAD-2018-0369716

PATIENT
  Age: 78 Year
  Sex: Male

DRUGS (12)
  1. VEMLIDY [Suspect]
     Active Substance: TENOFOVIR ALAFENAMIDE FUMARATE
     Indication: PRODUCT USED FOR UNKNOWN INDICATION
     Dosage: UNK
     Route: 065
  2. ELIQUIS [Concomitant]
     Active Substance: APIXABAN
  3. BONALON [Concomitant]
     Active Substance: ALENDRONATE SODIUM
     Indication: OSTEOPOROSIS
  4. ALLOPURINOL. [Concomitant]
     Active Substance: ALLOPURINOL
  5. ENALAPRIL [Concomitant]
     Active Substance: ENALAPRIL
  6. PREDNISOLONE. [Concomitant]
     Active Substance: PREDNISOLONE
  7. LOXOPROFEN [Concomitant]
     Active Substance: LOXOPROFEN
     Indication: PAIN
     Dosage: UNK, PRN
  8. CARVEDILOL. [Concomitant]
     Active Substance: CARVEDILOL
  9. ISOSORBIDE DINITRATE. [Concomitant]
     Active Substance: ISOSORBIDE DINITRATE
  10. NEXIUM [Concomitant]
     Active Substance: ESOMEPRAZOLE MAGNESIUM
  11. TAMSULOSIN [Concomitant]
     Active Substance: TAMSULOSIN
  12. REBAMIPIDE [Concomitant]
     Active Substance: REBAMIPIDE
     Indication: PAIN
     Dosage: UNK, PRN

REACTIONS (1)
  - Cerebral infarction [Unknown]
